FAERS Safety Report 7262721-5 (Version None)
Quarter: 2011Q1

REPORT INFORMATION
  Report Type: 
  Country: None (occurrence: None)
  Receive Date: 20110130
  Receipt Date: 20100927
  Transmission Date: 20110831
  Serious: No
  Sender: FDA-Public Use
  Company Number: US-ABBOTT-10P-163-0673874-00

PATIENT
  Age: 62 Year
  Sex: Female

DRUGS (5)
  1. HUMIRA [Suspect]
  2. OMEPRAZOLE [Concomitant]
     Indication: PRODUCT USED FOR UNKNOWN INDICATION
  3. HUMIRA [Suspect]
     Indication: COLITIS ULCERATIVE
     Dosage: LOADING DOSE DAY 1
     Dates: start: 20100903
  4. HUMIRA [Suspect]
     Dosage: DAY 15
  5. GEN LOMOTIL [Concomitant]
     Indication: PRODUCT USED FOR UNKNOWN INDICATION
     Dosage: ONE TAB AFTER EACH LOOSE STOOL TO 6 PER DAY

REACTIONS (6)
  - ERYTHEMA [None]
  - EYE SWELLING [None]
  - PYREXIA [None]
  - RASH PAPULAR [None]
  - ABDOMINAL PAIN [None]
  - DIARRHOEA [None]
